FAERS Safety Report 5721103-5 (Version None)
Quarter: 2008Q2

REPORT INFORMATION
  Report Type: 
  Country: None (occurrence: None)
  Receive Date: 20080424
  Receipt Date: 20080411
  Transmission Date: 20081010
  Serious: Yes (Death, Hospitalization, Other)
  Sender: FDA-Public Use
  Company Number: CERZ-10381

PATIENT
  Age: 7 Year
  Sex: Male
  Weight: 10 kg

DRUGS (1)
  1. CEREZYME [Suspect]
     Indication: GAUCHER'S DISEASE
     Dosage: 60 U/KG, Q2W, INTRAVENOUS
     Route: 042
     Dates: start: 20020401, end: 20030711

REACTIONS (20)
  - ANAEMIA [None]
  - DIARRHOEA [None]
  - DYSPNOEA [None]
  - FIBROSIS [None]
  - GROWTH RETARDATION [None]
  - HAEMORRHAGE [None]
  - HAEMORRHAGIC DIATHESIS [None]
  - HEPATIC CIRRHOSIS [None]
  - HEPATIC FIBROSIS [None]
  - HEPATOSPLENOMEGALY [None]
  - MYELOID METAPLASIA [None]
  - PALLOR [None]
  - PANCYTOPENIA [None]
  - PULMONARY CONGESTION [None]
  - PULMONARY OEDEMA [None]
  - PYREXIA [None]
  - SPLENIC INFARCTION [None]
  - SPLENITIS [None]
  - SPLENOMEGALY [None]
  - VOMITING [None]
